FAERS Safety Report 4836464-9 (Version None)
Quarter: 2005Q4

REPORT INFORMATION
  Report Type: 
  Country: None (occurrence: None)
  Receive Date: 20051118
  Receipt Date: 20051110
  Transmission Date: 20060501
  Serious: Yes (Hospitalization)
  Sender: FDA-Public Use
  Company Number: 2003018553

PATIENT
  Age: 60 Year
  Sex: Male
  Weight: 79 kg

DRUGS (6)
  1. ATORVASTATIN CALCIUM [Suspect]
     Indication: LIPID METABOLISM DISORDER
     Dosage: 20 MG (20 MG, 1 IN 1 D), ORAL
     Route: 048
     Dates: start: 20011204, end: 20030101
  2. ALLOSTAD (ALLOPURINOL) [Concomitant]
  3. BELOC COMP (HYDROCHLOROTHIAZIDE, METOPROLOL TARTRATE) [Concomitant]
  4. ORABET (TOLBUTAMIDE) [Concomitant]
  5. THRMOBO ASS (ACETYLSALICYLIC ACID) [Concomitant]
  6. RAMIPRIL [Concomitant]

REACTIONS (8)
  - BLOOD CREATINE PHOSPHOKINASE INCREASED [None]
  - BLOOD CREATINE PHOSPHOKINASE MB INCREASED [None]
  - MUSCULOSKELETAL STIFFNESS [None]
  - MYALGIA [None]
  - MYOPATHY [None]
  - NECK PAIN [None]
  - POLYMYALGIA [None]
  - RED BLOOD CELL SEDIMENTATION RATE INCREASED [None]
